FAERS Safety Report 6428390-9 (Version None)
Quarter: 2009Q4

REPORT INFORMATION
  Report Type: 
  Country: None (occurrence: None)
  Receive Date: 20091105
  Receipt Date: 20091102
  Transmission Date: 20100525
  Serious: Yes (Hospitalization, Congenital Anomaly)
  Sender: FDA-Public Use
  Company Number: A0679470A

PATIENT
  Sex: Female
  Weight: 2.5 kg

DRUGS (7)
  1. PAXIL [Suspect]
     Indication: PANIC ATTACK
     Dosage: 30MG TWICE PER DAY
     Dates: start: 19990101
  2. VITAMIN TAB [Concomitant]
  3. TYLENOL [Concomitant]
  4. PROPRANOLOL [Concomitant]
  5. BETAMETHASONE [Concomitant]
  6. TYLENOL W/ CODEINE NO. 3 [Concomitant]
  7. IRON [Concomitant]
     Dates: start: 20030811

REACTIONS (4)
  - COGNITIVE DISORDER [None]
  - DILATATION ATRIAL [None]
  - DRUG EXPOSURE DURING PREGNANCY [None]
  - MULTIPLE CONGENITAL ABNORMALITIES [None]
